FAERS Safety Report 14555858 (Version 1)
Quarter: 2018Q1

REPORT INFORMATION
  Report Type: Report from Study
  Country: US (occurrence: US)
  Receive Date: 20180221
  Receipt Date: 20180221
  Transmission Date: 20180509
  Serious: Yes (Other)
  Sender: FDA-Public Use
  Company Number: US-AMGEN-USASL2018013370

PATIENT
  Age: 72 Year
  Sex: Female

DRUGS (1)
  1. REPATHA [Suspect]
     Active Substance: EVOLOCUMAB
     Indication: PRODUCT USED FOR UNKNOWN INDICATION
     Dosage: 140 MG, Q2WK
     Route: 065

REACTIONS (16)
  - Lymphocyte count increased [Unknown]
  - Tongue erythema [Unknown]
  - Oral discomfort [Unknown]
  - Swelling face [Unknown]
  - Blood pressure increased [Unknown]
  - Swollen tongue [Unknown]
  - White blood cell count increased [Unknown]
  - Oral mucosal blistering [Unknown]
  - Fungal infection [Unknown]
  - Drug hypersensitivity [Unknown]
  - Cerebrovascular accident [Unknown]
  - Urticaria [Unknown]
  - Red blood cell count increased [Unknown]
  - Gingivitis [Recovered/Resolved]
  - Haemoglobin increased [Unknown]
  - Dental care [Unknown]

NARRATIVE: CASE EVENT DATE: 2017
